FAERS Safety Report 19515916 (Version 1)
Quarter: 2021Q3

REPORT INFORMATION
  Report Type: Spontaneous
  Country: FR (occurrence: FR)
  Receive Date: 20210709
  Receipt Date: 20210709
  Transmission Date: 20211014
  Serious: Yes (Hospitalization)
  Sender: FDA-Public Use
  Company Number: NVSC2021FR149167

PATIENT
  Age: 74 Year
  Sex: Female
  Weight: 38 kg

DRUGS (2)
  1. ESIDREX [Suspect]
     Active Substance: HYDROCHLOROTHIAZIDE
     Indication: HYPERTENSION
     Dosage: 12.5 MG, QD
     Route: 048
     Dates: start: 20210114, end: 20210603
  2. INEXIUM [Suspect]
     Active Substance: ESOMEPRAZOLE
     Indication: OESOPHAGITIS
     Dosage: 1 DF, QD
     Route: 048
     Dates: start: 2019

REACTIONS (4)
  - Hypomagnesaemia [Recovering/Resolving]
  - Acute kidney injury [Recovering/Resolving]
  - Hypocalcaemia [Recovering/Resolving]
  - Hypoparathyroidism [Recovering/Resolving]

NARRATIVE: CASE EVENT DATE: 20210603
